FAERS Safety Report 6905724-X (Version None)
Quarter: 2010Q3

REPORT INFORMATION
  Report Type: 
  Country: None (occurrence: None)
  Receive Date: 20100804
  Receipt Date: 20100729
  Transmission Date: 20110219
  Serious: Yes (Other)
  Sender: FDA-Public Use
  Company Number: GB-BAYER-201025990GPV

PATIENT
  Age: 42 Year
  Sex: Male

DRUGS (2)
  1. SORAFENIB [Suspect]
     Indication: RENAL CELL CARCINOMA
     Dosage: TOTAL DAILY DOSE: 800 MG
     Route: 048
     Dates: start: 20100122, end: 20100514
  2. AMLODIPINE [Concomitant]
     Indication: HYPERTENSION
     Dates: start: 20100318

REACTIONS (3)
  - ARTERIAL SPASM [None]
  - FEELING COLD [None]
  - HYPOAESTHESIA [None]
